FAERS Safety Report 26177454 (Version 1)
Quarter: 2025Q4

REPORT INFORMATION
  Report Type: Spontaneous
  Country: US (occurrence: US)
  Receive Date: 20251219
  Receipt Date: 20251219
  Transmission Date: 20260117
  Serious: Yes (Life-Threatening, Hospitalization, Other)
  Sender: UNICHEM
  Company Number: US-UNICHEM LABORATORIES LIMITED-UNI-2025-US-004186

PATIENT

DRUGS (2)
  1. AMLODIPINE [Suspect]
     Active Substance: AMLODIPINE BESYLATE
     Indication: Product used for unknown indication
     Dosage: 8 DOSAGE FORM (PILLS)
     Route: 065
  2. CALCIUM GLUCONATE [Concomitant]
     Active Substance: CALCIUM GLUCONATE
     Indication: Accidental overdose
     Dosage: UNK
     Route: 065

REACTIONS (12)
  - Multiple organ dysfunction syndrome [Unknown]
  - Hypoxia [Unknown]
  - Accidental overdose [Unknown]
  - Toxicity to various agents [Unknown]
  - Tachycardia [Unknown]
  - Hypotension [Unknown]
  - Hyperglycaemia [Recovering/Resolving]
  - Diastolic dysfunction [Unknown]
  - Product name confusion [Unknown]
  - Thrombosis [Unknown]
  - Urinary retention [Unknown]
  - Dyschezia [Unknown]
